FAERS Safety Report 8415008-9 (Version None)
Quarter: 2012Q2

REPORT INFORMATION
  Report Type: 
  Country: None (occurrence: None)
  Receive Date: 20120530
  Receipt Date: 20120517
  Transmission Date: 20120825
  Serious: Yes (Hospitalization)
  Sender: FDA-Public Use
  Company Number: 2012SP019333

PATIENT
  Age: 60 Year
  Sex: Female
  Weight: 82.5547 kg

DRUGS (53)
  1. PLACEBO [Suspect]
     Indication: HEPATITIS C
     Dosage: 1 DF
     Dates: start: 20120313, end: 20120313
  2. PLACEBO [Suspect]
     Indication: HEPATITIS C
     Dosage: 1 DF
     Dates: start: 20111227, end: 20120312
  3. PLACEBO [Suspect]
     Indication: HEPATITIS C
     Dosage: 1 DF
     Dates: start: 20120314, end: 20120320
  4. TRAMADOL HCL [Concomitant]
  5. ADVIL [Concomitant]
  6. BENADRYL [Concomitant]
  7. RIBAVIRIN [Suspect]
     Indication: HEPATITIS C
     Dosage: 3DF; 3DF;QAM 3DF;QPM
     Dates: start: 20120314, end: 20120325
  8. RIBAVIRIN [Suspect]
     Indication: HEPATITIS C
     Dosage: 3DF; 3DF;QAM 3DF;QPM
     Dates: start: 20120312, end: 20120313
  9. RIBAVIRIN [Suspect]
     Indication: HEPATITIS C
     Dosage: 3DF; 3DF;QAM 3DF;QPM
     Dates: start: 20120313, end: 20120313
  10. RIBAVIRIN [Suspect]
     Indication: HEPATITIS C
     Dosage: 3DF; 3DF;QAM 3DF;QPM
     Dates: start: 20120326, end: 20120409
  11. RIBAVIRIN [Suspect]
     Indication: HEPATITIS C
     Dosage: 3DF; 3DF;QAM 3DF;QPM
     Dates: start: 20111227, end: 20120204
  12. RIBAVIRIN [Suspect]
     Indication: HEPATITIS C
     Dosage: 3DF; 3DF;QAM 3DF;QPM
     Dates: start: 20120207, end: 20120311
  13. RIBAVIRIN [Suspect]
     Indication: HEPATITIS C
     Dosage: 3DF; 3DF;QAM 3DF;QPM
     Dates: start: 20120207, end: 20120311
  14. RIBAVIRIN [Suspect]
     Indication: HEPATITIS C
     Dosage: 3DF; 3DF;QAM 3DF;QPM
     Dates: start: 20111227, end: 20111227
  15. RIBAVIRIN [Suspect]
     Indication: HEPATITIS C
     Dosage: 3DF; 3DF;QAM 3DF;QPM
     Dates: start: 20120410, end: 20120410
  16. RIBAVIRIN [Suspect]
     Indication: HEPATITIS C
     Dosage: 3DF; 3DF;QAM 3DF;QPM
     Dates: start: 20120205, end: 20120206
  17. RIBAVIRIN [Suspect]
     Indication: HEPATITIS C
     Dosage: 3DF; 3DF;QAM 3DF;QPM
     Dates: start: 20120314, end: 20120406
  18. RIBAVIRIN [Suspect]
     Indication: HEPATITIS C
     Dosage: 3DF; 3DF;QAM 3DF;QPM
     Dates: start: 20120319, end: 20120410
  19. RIBAVIRIN [Suspect]
     Indication: HEPATITIS C
     Dosage: 3DF; 3DF;QAM 3DF;QPM
     Dates: start: 20111228, end: 20120312
  20. RIBAVIRIN [Suspect]
     Indication: HEPATITIS C
     Dosage: 3DF; 3DF;QAM 3DF;QPM
     Dates: start: 20120407, end: 20120409
  21. PEG-INTRON [Suspect]
     Indication: HEPATITIS C
     Dosage: 0.5 ML
     Dates: start: 20120311, end: 20120311
  22. PEG-INTRON [Suspect]
     Indication: HEPATITIS C
     Dosage: 0.5 ML
     Dates: start: 20120319, end: 20120319
  23. PEG-INTRON [Suspect]
     Indication: HEPATITIS C
     Dosage: 0.5 ML
     Dates: start: 20120108, end: 20120108
  24. PEG-INTRON [Suspect]
     Indication: HEPATITIS C
     Dosage: 0.5 ML
     Dates: start: 20120122, end: 20120122
  25. PEG-INTRON [Suspect]
     Indication: HEPATITIS C
     Dosage: 0.5 ML
     Dates: start: 20120129, end: 20120129
  26. PEG-INTRON [Suspect]
     Indication: HEPATITIS C
     Dosage: 0.5 ML
     Dates: start: 20120326, end: 20120326
  27. PEG-INTRON [Suspect]
     Indication: HEPATITIS C
     Dosage: 0.5 ML
     Dates: start: 20120226, end: 20120226
  28. PEG-INTRON [Suspect]
     Indication: HEPATITIS C
     Dosage: 0.5 ML
     Dates: start: 20111227, end: 20111227
  29. PEG-INTRON [Suspect]
     Indication: HEPATITIS C
     Dosage: 0.5 ML
     Dates: start: 20120206, end: 20120206
  30. PEG-INTRON [Suspect]
     Indication: HEPATITIS C
     Dosage: 0.5 ML
     Dates: start: 20120212, end: 20120212
  31. PEG-INTRON [Suspect]
     Indication: HEPATITIS C
     Dosage: 0.5 ML
     Dates: start: 20120220, end: 20120220
  32. PEG-INTRON [Suspect]
     Indication: HEPATITIS C
     Dosage: 0.5 ML
     Dates: start: 20120102, end: 20120102
  33. PEG-INTRON [Suspect]
     Indication: HEPATITIS C
     Dosage: 0.5 ML
     Dates: start: 20120304, end: 20120304
  34. PEG-INTRON [Suspect]
     Indication: HEPATITIS C
     Dosage: 0.5 ML
     Dates: start: 20120326, end: 20120409
  35. PEG-INTRON [Suspect]
     Indication: HEPATITIS C
     Dosage: 0.5 ML
     Dates: start: 20120115, end: 20120115
  36. PEG-INTRON [Suspect]
     Indication: HEPATITIS C
     Dosage: 0.5 ML
     Dates: start: 20120402, end: 20120402
  37. PEG-INTRON [Suspect]
     Indication: HEPATITIS C
     Dosage: 0.5 ML
     Dates: start: 20120409, end: 20120409
  38. CIPROFLOXACIN [Concomitant]
  39. BOCEPREVIR [Suspect]
     Indication: HEPATITIS C
     Dosage: 800 MG;TID 8 DF; 12 DF; 4 DF;
     Dates: start: 20120206, end: 20120206
  40. BOCEPREVIR [Suspect]
     Indication: HEPATITIS C
     Dosage: 800 MG;TID 8 DF; 12 DF; 4 DF;
     Dates: start: 20120227, end: 20120311
  41. BOCEPREVIR [Suspect]
     Indication: HEPATITIS C
     Dosage: 800 MG;TID 8 DF; 12 DF; 4 DF;
     Dates: start: 20120313, end: 20120313
  42. BOCEPREVIR [Suspect]
     Indication: HEPATITIS C
     Dosage: 800 MG;TID 8 DF; 12 DF; 4 DF;
     Dates: start: 20120314, end: 20120409
  43. BOCEPREVIR [Suspect]
     Indication: HEPATITIS C
     Dosage: 800 MG;TID 8 DF; 12 DF; 4 DF;
     Dates: start: 20120207, end: 20120220
  44. BOCEPREVIR [Suspect]
     Indication: HEPATITIS C
     Dosage: 800 MG;TID 8 DF; 12 DF; 4 DF;
     Dates: start: 20120124, end: 20120204
  45. BOCEPREVIR [Suspect]
     Indication: HEPATITIS C
     Dosage: 800 MG;TID 8 DF; 12 DF; 4 DF;
     Dates: start: 20120125, end: 20120204
  46. BOCEPREVIR [Suspect]
     Indication: HEPATITIS C
     Dosage: 800 MG;TID 8 DF; 12 DF; 4 DF;
     Dates: start: 20120312, end: 20120312
  47. BOCEPREVIR [Suspect]
     Indication: HEPATITIS C
     Dosage: 800 MG;TID 8 DF; 12 DF; 4 DF;
     Dates: start: 20120320, end: 20120410
  48. BOCEPREVIR [Suspect]
     Indication: HEPATITIS C
     Dosage: 800 MG;TID 8 DF; 12 DF; 4 DF;
     Dates: start: 20120124, end: 20120319
  49. BOCEPREVIR [Suspect]
     Indication: HEPATITIS C
     Dosage: 800 MG;TID 8 DF; 12 DF; 4 DF;
     Dates: start: 20120205, end: 20120205
  50. BOCEPREVIR [Suspect]
     Indication: HEPATITIS C
     Dosage: 800 MG;TID 8 DF; 12 DF; 4 DF;
     Dates: start: 20120410, end: 20120410
  51. ATENOLOL [Concomitant]
  52. METPROLOL [Concomitant]
  53. PROMETHAZINE HYDROCHLORIDE [Concomitant]

REACTIONS (2)
  - DIVERTICULITIS [None]
  - ATRIAL FIBRILLATION [None]
